FAERS Safety Report 7104951-9 (Version None)
Quarter: 2010Q4

REPORT INFORMATION
  Report Type: 
  Country: None (occurrence: None)
  Receive Date: 20101116
  Receipt Date: 20101103
  Transmission Date: 20110411
  Serious: Yes (Other)
  Sender: FDA-Public Use
  Company Number: PHFR2010GB04762

PATIENT

DRUGS (4)
  1. CLOZARIL [Suspect]
     Indication: PARKINSON'S DISEASE
     Dosage: 37.5 MG DAILY
     Dates: start: 20080304
  2. CLOZARIL [Suspect]
     Dosage: 62.5 MG DAILY
  3. APOMORPHINE [Concomitant]
  4. CO-BENELDOPA [Concomitant]

REACTIONS (4)
  - DISEASE PROGRESSION [None]
  - HALLUCINATION [None]
  - PARKINSON'S DISEASE [None]
  - PSYCHOTIC DISORDER [None]
